FAERS Safety Report 7399399-6 (Version None)
Quarter: 2011Q2

REPORT INFORMATION
  Report Type: 
  Country: None (occurrence: None)
  Receive Date: 20110407
  Receipt Date: 20110324
  Transmission Date: 20111010
  Serious: Yes (Other)
  Sender: FDA-Public Use
  Company Number: PHHY2011FR26421

PATIENT
  Sex: Female
  Weight: 60 kg

DRUGS (7)
  1. PERGOLIDE MESYLATE [Concomitant]
  2. MODOPAR [Suspect]
     Dosage: 62.5 (UNKNOWN UNITS) PER DAY
  3. MODOPAR [Suspect]
     Dosage: 125 DISPERSIBLE, 3 TIMES PER DAY
  4. MODOPAR [Suspect]
     Dosage: 62.5 (UNKNOWN UNITS) 4 TABLETS PER DAY
  5. PARLODEL [Suspect]
     Indication: PARKINSON'S DISEASE
     Dosage: UNK
     Dates: start: 19950101, end: 20030101
  6. MODOPAR [Suspect]
     Indication: PARKINSON'S DISEASE
     Dosage: 250 MG, TID
     Dates: start: 19950101
  7. MODOPAR [Suspect]
     Dosage: 125 LP ONE TABLET AT BEDTIME

REACTIONS (1)
  - COMPULSIVE SHOPPING [None]
